FAERS Safety Report 9113446 (Version 1)
Quarter: 2013Q1

REPORT INFORMATION
  Report Type: Spontaneous
  Country: FR (occurrence: FR)
  Receive Date: 20130131
  Receipt Date: 20130131
  Transmission Date: 20140127
  Serious: Yes (Hospitalization, Other)
  Sender: FDA-Public Use
  Company Number: FR-ASTRAZENECA-2013SE05761

PATIENT
  Age: 46 Year
  Sex: Male

DRUGS (5)
  1. CRESTOR [Suspect]
     Route: 048
     Dates: start: 20120413, end: 20120418
  2. ESIDREX [Suspect]
     Route: 048
     Dates: start: 20120411, end: 20120424
  3. RAMIPRIL (ACTAVIS) [Suspect]
     Route: 048
     Dates: start: 20120415, end: 20120417
  4. CONTRAMAL LP [Suspect]
     Route: 048
     Dates: start: 20120415, end: 20120420
  5. BACTRIM [Suspect]
     Route: 048
     Dates: start: 20120406, end: 20120413

REACTIONS (3)
  - Dermatitis bullous [Recovered/Resolved]
  - Vasculitis [Unknown]
  - Angioedema [Recovered/Resolved]
